FAERS Safety Report 4967203-9 (Version None)
Quarter: 2006Q2

REPORT INFORMATION
  Report Type: 
  Country: None (occurrence: None)
  Receive Date: 20060410
  Receipt Date: 20060328
  Transmission Date: 20061013
  Serious: Yes (Life-Threatening)
  Sender: FDA-Public Use
  Company Number: PHHO2006JP05097

PATIENT
  Age: 67 Year
  Sex: Male
  Weight: 55 kg

DRUGS (2)
  1. CGP 57148B [Suspect]
     Indication: GASTROINTESTINAL STROMAL TUMOUR
     Dosage: 400 MG, QD
     Route: 048
     Dates: start: 20060217, end: 20060317
  2. FLIVAS [Concomitant]
     Indication: BENIGN PROSTATIC HYPERPLASIA

REACTIONS (2)
  - DEPRESSION [None]
  - SUICIDAL IDEATION [None]
